FAERS Safety Report 23858368 (Version 1)
Quarter: 2024Q2

REPORT INFORMATION
  Report Type: Report from Study
  Country: CN (occurrence: CN)
  Receive Date: 20240515
  Receipt Date: 20240515
  Transmission Date: 20240715
  Serious: Yes (Other)
  Sender: FDA-Public Use
  Company Number: CN-SUN PHARMACEUTICAL INDUSTRIES LTD-2024R1-446326

PATIENT
  Age: 59 Year
  Sex: Male

DRUGS (3)
  1. CARBOPLATIN [Suspect]
     Active Substance: CARBOPLATIN
     Indication: Oesophageal squamous cell carcinoma stage IV
     Dosage: AUC 3, GIVEN ON DAY 1 OF EACH CYCLE, EVERY THREE WEEKS
     Route: 065
  2. PACLITAXEL [Suspect]
     Active Substance: PACLITAXEL
     Indication: Oesophageal squamous cell carcinoma stage IV
     Dosage: 260 MILLIGRAM/SQ. METER, EVERY THREE WEEKS
     Route: 065
  3. CAMRELIZUMAB [Concomitant]
     Active Substance: CAMRELIZUMAB
     Indication: Oesophageal squamous cell carcinoma stage IV
     Dosage: 200 MILLIGRAM OVER 30 MIN (NOT LESS THAN 20 MIN AND NOT MORE THAN 60 MIN), EVERY THREE WEEKS
     Route: 042

REACTIONS (1)
  - Disease progression [Unknown]
